FAERS Safety Report 22007030 (Version 1)
Quarter: 2023Q1

REPORT INFORMATION
  Report Type: Spontaneous
  Country: PT (occurrence: PT)
  Receive Date: 20230217
  Receipt Date: 20230217
  Transmission Date: 20230417
  Serious: Yes (Other)
  Sender: FDA-Public Use
  Company Number: None

PATIENT
  Age: 85 Year
  Sex: Female

DRUGS (2)
  1. ERBITUX [Suspect]
     Active Substance: CETUXIMAB
     Indication: Colorectal adenocarcinoma
     Dosage: 712 MG, WEEKLY (1/W)
     Route: 042
     Dates: start: 20221115, end: 20221115
  2. ENCORAFENIB [Concomitant]
     Active Substance: ENCORAFENIB
     Indication: Colorectal adenocarcinoma
     Dosage: 300 MG, DAILY
     Route: 048

REACTIONS (5)
  - Cough [Recovered/Resolved]
  - Tremor [Recovered/Resolved]
  - Papule [Recovered/Resolved]
  - Pruritus [Recovered/Resolved]
  - Infusion related reaction [Recovered/Resolved]

NARRATIVE: CASE EVENT DATE: 20221115
